FAERS Safety Report 23140588 (Version 2)
Quarter: 2023Q4

REPORT INFORMATION
  Report Type: Spontaneous
  Country: GB (occurrence: GB)
  Receive Date: 20231103
  Receipt Date: 20231114
  Transmission Date: 20240109
  Serious: Yes (Hospitalization, Other)
  Sender: FDA-Public Use
  Company Number: GB-TAKEDA-2021TUS082084

PATIENT
  Age: 74 Year
  Sex: Male

DRUGS (26)
  1. ACYCLOVIR [Suspect]
     Active Substance: ACYCLOVIR
     Indication: Product used for unknown indication
     Dosage: 800 MG (MILLIGRAMS), ONCE DAILY (DOSAGE TEXT: 400 MILLIGRAM, BID), (ADDITIONAL INFORMATION ON DRUG:
     Route: 065
  2. ACYCLOVIR [Suspect]
     Active Substance: ACYCLOVIR
     Dosage: 40 MG (MILLIGRAMS), ONCE DAILY (DOSAGE TEXT: 20 MILLIGRAM, BID) (ADDITIONAL INFORMATION ON DRUG: ADD
     Route: 065
  3. METOCLOPRAMIDE [Suspect]
     Active Substance: METOCLOPRAMIDE
     Indication: Product used for unknown indication
     Dosage: 30 MG (MILLIGRAM), ONCE DAILY (DOSAGE TEXT: 10 MILLIGRAM, TID) (ADDITIONAL INFORMATION ON DRUG: ADDI
     Route: 065
  4. CALCIUM CARBONATE\CHOLECALCIFEROL [Suspect]
     Active Substance: CALCIUM CARBONATE\CHOLECALCIFEROL
     Indication: Product used for unknown indication
     Dosage: AT AN UNSPECIFIED DOSE ONCE DAILY (DOSAGE TEXT: UNK UNK, BID;) (ADDITIONAL INFORMATION ON DRUG: ADDI
     Route: 065
  5. COTRIMOXAZOLE [Suspect]
     Active Substance: SULFAMETHOXAZOLE\TRIMETHOPRIM
     Indication: Product used for unknown indication
     Dosage: AT AN UNSPECIFIED DOSE ONCE DAILY (DOSAGE TEXT: UNK UNK, BID;) (ADDITIONAL INFORMATION ON DRUG: ADDI
     Route: 065
  6. DEXAMETHASONE [Suspect]
     Active Substance: DEXAMETHASONE
     Indication: Product used for unknown indication
     Dosage: 10 MG (MILLIGRAMS), AT AN UNSPECIFIED FREQUENCY (DOSAGE TEXT: 10 MG ON DAY 1, 8, 15 AND 22 DAYS) (AD
     Route: 065
  7. LOPERAMIDE [Suspect]
     Active Substance: LOPERAMIDE
     Indication: Product used for unknown indication
     Dosage: 2 MG (MILLIGRAM), AT AN UNSPECIFIED FRQUENCY (DOSAGE TEXT: 2 MILLIGRAM; (FREQUENCY NOT REPORTED)) (A
     Route: 065
  8. NINLARO [Suspect]
     Active Substance: IXAZOMIB CITRATE
     Indication: Product used for unknown indication
     Dosage: 2.3 MG (MILLIGRAM), ONCE A WEEK (DOSAGE TEXT: 2.3 MILLIGRAM, 1/WEEK) (ADDITIONAL INFORMATION ON DRUG
     Route: 065
  9. OMEPRAZOLE [Suspect]
     Active Substance: OMEPRAZOLE
     Indication: Product used for unknown indication
     Dosage: 20 MILLIGRAM, ONCE DAILY (DOSAGE TEXT: 20 MILLIGRAM, QD (20 MILLIGRAM, ONCE DAILY)) (ADDITIONAL INFO
     Route: 065
  10. REVLIMID [Suspect]
     Active Substance: LENALIDOMIDE
     Indication: Product used for unknown indication
     Dosage: 15 MG (MILLIGRAM), ONCE DAILY (DOSAGE TEXT: 15 MG, QD (ON DAYS 1-21)), (ADDITIONAL INFORMATION ON DR
     Route: 065
  11. REVLIMID [Suspect]
     Active Substance: LENALIDOMIDE
     Dosage: 400 MG (MILLIGRAMS) AT AN UNSPECIFIED FREQUENCY (DOSAGE TEXT: 400 MILLIGRAM;) (ADDITIONAL INFORMATIO
     Route: 065
  12. REVLIMID [Suspect]
     Active Substance: LENALIDOMIDE
     Dosage: 5 MG (MILLIGRAMS) AT AN UNSPECIFIED FREQUENCY (DOSAGE TEXT: 5 MILLIGRAM;), (ADDITIONAL INFORMATION O
     Route: 065
  13. XARELTO [Suspect]
     Active Substance: RIVAROXABAN
     Indication: Product used for unknown indication
     Dosage: 10 MILLIGRAM, ONCE DAILY (DOSAGE TEXT: 10 MILLIGRAM, QD), (ADDITIONAL INFORMATION ON DRUG: ADDITIONA
     Route: 065
  14. XARELTO [Suspect]
     Active Substance: RIVAROXABAN
     Dosage: 20 MILLIGRAM, AT AN UNSPECIFIED FREQUENCY (DOSAGE TEXT: 20 MILLIGRAM;), (ADDITIONAL INFORMATION ON D
     Route: 065
  15. XARELTO [Suspect]
     Active Substance: RIVAROXABAN
     Dosage: 15 MILLIGRAM, AT AN UNSPECIFIED FREQUENCY (DOSAGE TEXT: 15 MILLIGRAM;) (ADDITIONAL INFORMATION ON DR
     Route: 065
  16. EPOETIN BETA [Suspect]
     Active Substance: ERYTHROPOIETIN
     Indication: Product used for unknown indication
     Dosage: 4000 (INTERNATIONAL UNIT), ONCE WEEK, (DOSAGE TEXT: 2000 INTERNATIONAL UNIT, 2/WEEK) (ADDITIONAL INF
     Route: 058
  17. INTERFERON ALFA-2B [Suspect]
     Active Substance: INTERFERON ALFA-2B
     Indication: Product used for unknown indication
     Dosage: 40 MG, (MILLIGRAMS) ONCE DAILY (DOSAGE TEXT: 20 MILLIGRAM, BID) (ADDITIONAL INFORMATION ON DRUG: ADD
     Route: 065
  18. INTERFERON ALFA-2B [Suspect]
     Active Substance: INTERFERON ALFA-2B
     Dosage: 400 MG (MILLIGRAMS), ONCE DAILY (DOSAGE TEXT: 400 MG, BID (800 MG, ONCE DAILY)) (ADDITIONAL INFORMAT
     Route: 065
  19. LIDOCAINE [Suspect]
     Active Substance: LIDOCAINE
     Indication: Product used for unknown indication
     Dosage: 400 MG (MILLIGRAMS), ONCE DAILY (DOSAGE TEXT: 400 MG, BID (800 MG, ONCE DAILY) (ADDITIONAL INFORMATI
     Route: 065
  20. LIDOCAINE [Suspect]
     Active Substance: LIDOCAINE
     Dosage: 40 MG (MILLIGRAMS), ONCE DAILY (DOSAGE TEXT: 20 MILLIGRAM, BID) (ADDITIONAL INFORMATION ON DRUG: ADD
     Route: 065
  21. FENPIVERINIUM BROMIDE [Suspect]
     Active Substance: FENPIVERINIUM BROMIDE
     Indication: Product used for unknown indication
     Dosage: AT AN UNSPECIFIED DOSE ONCE DAILY (DOSAGE TEXT: UNK, QD (UNK, BID))
     Route: 065
  22. METAMIZOLE [Suspect]
     Active Substance: METAMIZOLE
     Indication: Product used for unknown indication
     Dosage: AT AN UNSPECIFIED DOSE ONCE DAILY (DOSAGE TEXT: UNK, QD (UNK, BID))
     Route: 065
  23. PITOFENONE HYDROCHLORIDE [Suspect]
     Active Substance: PITOFENONE HYDROCHLORIDE
     Indication: Product used for unknown indication
     Dosage: AT AN UNSPECIFIED DOSE ONCE DAILY (DOSAGE TEXT: UNK, QD (UNK, BID))
     Route: 065
  24. SIMETHICONE (DIMETHICONE) [Suspect]
     Active Substance: DIMETHICONE
     Indication: Product used for unknown indication
     Dosage: 2 MG (MILLIGRAMS) AT AN UNSPECIFIED FREQUENCY (DOSAGE TEXT: 2 MG (FREQUENCY NOT REPORTED)) (ADDITION
     Route: 065
  25. SIMETHICONE (DIMETHICONE) [Suspect]
     Active Substance: DIMETHICONE
     Dosage: 10 MG (MILLIGRAMS), ONCE DAILY (DOSAGE TEXT: 10 MG, TID (PRN)) (ADDITIONAL INFORMATION ON DRUG: ADDI
     Route: 065
  26. PANCREATIN [Suspect]
     Active Substance: PANCRELIPASE
     Indication: Product used for unknown indication
     Dosage: 10 MG (MILLIGRAMS), ONCE DAILY (DOSAGE TEXT: 10 MG, TID (PRN)) (ADDITIONAL INFORMATION ON DRUG: ADDI
     Route: 065

REACTIONS (16)
  - Cerebrovascular accident [Unknown]
  - Hypoaesthesia [Unknown]
  - Neutrophil count abnormal [Unknown]
  - Inappropriate schedule of product administration [Unknown]
  - Balance disorder [Unknown]
  - Malaise [Unknown]
  - Fall [Unknown]
  - Gait disturbance [Unknown]
  - Musculoskeletal chest pain [Unknown]
  - Limb discomfort [Unknown]
  - Productive cough [Unknown]
  - Feeling cold [Unknown]
  - Chromaturia [Unknown]
  - Decreased appetite [Unknown]
  - Pyrexia [Unknown]
  - Confusional state [Unknown]
